FAERS Safety Report 9192925 (Version 1)
Quarter: 2013Q1

REPORT INFORMATION
  Report Type: Spontaneous
  Country: US (occurrence: None)
  Receive Date: 20120703
  Receipt Date: 20120703
  Transmission Date: 20140127
  Serious: No
  Sender: FDA-Public Use
  Company Number: PHEH2012US009769

PATIENT
  Age: 76 Year
  Sex: Female

DRUGS (7)
  1. GILENYA [Suspect]
     Indication: MULTIPLE SCLEROSIS
     Route: 048
     Dates: start: 20120427
  2. SYNTHROID (LEVOTHYROXINE SODIUM) [Concomitant]
  3. BACLOFEN (BACLOFEN) [Concomitant]
  4. TAMOXIFEN [Concomitant]
  5. LEXAPRO (ESCITALOPRAM OXALATE) [Concomitant]
  6. AMANTADINE (AMANTADINE) [Concomitant]
  7. B-COMPLEX (VITAMIN B NOS) [Concomitant]

REACTIONS (3)
  - Fatigue [None]
  - Dyskinesia [None]
  - Cough [None]
